FAERS Safety Report 5248703-3 (Version None)
Quarter: 2007Q1

REPORT INFORMATION
  Report Type: 
  Country: None (occurrence: None)
  Receive Date: 20070222
  Receipt Date: 20070212
  Transmission Date: 20070707
  Serious: Yes (Other)
  Sender: FDA-Public Use
  Company Number: 236582

PATIENT
  Sex: Female
  Weight: 84.8 kg

DRUGS (13)
  1. XOLAIR [Suspect]
     Indication: ASTHMA
     Dosage: UNK, Q2W, SUBCUTANEOUS
     Route: 058
     Dates: start: 20040801
  2. PULMICORT [Concomitant]
  3. FORADIL [Concomitant]
  4. ALLEGRA [Concomitant]
  5. SINGULAIR [Concomitant]
  6. NEXIUM [Concomitant]
  7. DIOVAN [Concomitant]
  8. METFORMIN (HYDROCHLORIDE METFORMIN) [Concomitant]
  9. SYNTHROID [Concomitant]
  10. ESTRATEST [Concomitant]
  11. VYTORIN [Concomitant]
  12. MULTIVITAMIN (MULTIVITAMINS NOS) [Concomitant]
  13. FISH OIL (FISH OIL) [Concomitant]

REACTIONS (4)
  - DIABETES MELLITUS NON-INSULIN-DEPENDENT [None]
  - FATIGUE [None]
  - HYPERTENSION [None]
  - NASOPHARYNGITIS [None]
